FAERS Safety Report 7172925-8 (Version None)
Quarter: 2010Q4

REPORT INFORMATION
  Report Type: 
  Country: None (occurrence: None)
  Receive Date: 20101219
  Receipt Date: 20100216
  Transmission Date: 20110411
  Serious: No
  Sender: FDA-Public Use
  Company Number: US-AMGEN-KDL393350

PATIENT

DRUGS (2)
  1. ENBREL [Suspect]
     Indication: RHEUMATOID ARTHRITIS
     Dosage: 50 MG, QWK
     Route: 058
     Dates: start: 19981201
  2. METHOTREXATE [Concomitant]
     Dosage: 10 MG, Q2WK
     Route: 048

REACTIONS (4)
  - COUGH [None]
  - FLUSHING [None]
  - PYREXIA [None]
  - RHINORRHOEA [None]
